FAERS Safety Report 11649392 (Version 2)
Quarter: 2015Q4

REPORT INFORMATION
  Report Type: Report from Study
  Country: CA (occurrence: CA)
  Receive Date: 20151021
  Receipt Date: 20151221
  Transmission Date: 20160304
  Serious: Yes (Hospitalization)
  Sender: FDA-Public Use
  Company Number: CA-JNJFOC-20151012488

PATIENT
  Sex: Male
  Weight: 89 kg

DRUGS (3)
  1. REMICADE [Suspect]
     Active Substance: INFLIXIMAB
     Indication: CROHN^S DISEASE
     Route: 042
     Dates: start: 20150126
  2. IMURAN [Concomitant]
     Active Substance: AZATHIOPRINE
     Indication: CROHN^S DISEASE
     Route: 065
  3. GLIVEC [Concomitant]
     Active Substance: IMATINIB MESYLATE
     Indication: CROHN^S DISEASE
     Route: 065

REACTIONS (1)
  - Gastrointestinal neoplasm [Recovering/Resolving]
